FAERS Safety Report 17161044 (Version 1)
Quarter: 2019Q4

REPORT INFORMATION
  Report Type: Spontaneous
  Country: US (occurrence: US)
  Receive Date: 20191216
  Receipt Date: 20191216
  Transmission Date: 20200122
  Serious: No
  Sender: FDA-Public Use
  Company Number: US-GILEAD-2019-0442324

PATIENT
  Age: 26 Year
  Sex: Female

DRUGS (1)
  1. EPCLUSA [Suspect]
     Active Substance: SOFOSBUVIR\VELPATASVIR
     Indication: HEPATITIS C
     Dosage: UNK UNK, QOD
     Route: 065
     Dates: start: 201909

REACTIONS (6)
  - Alopecia [Unknown]
  - Flatulence [Not Recovered/Not Resolved]
  - Vomiting [Unknown]
  - Unevaluable event [Unknown]
  - Product use issue [Recovered/Resolved]
  - Off label use [Recovered/Resolved]
